FAERS Safety Report 6755180-X (Version None)
Quarter: 2010Q2

REPORT INFORMATION
  Report Type: 
  Country: None (occurrence: None)
  Receive Date: 20100604
  Receipt Date: 20100525
  Transmission Date: 20101027
  Serious: No
  Sender: FDA-Public Use
  Company Number: US-BIOGENIDEC-2010BI017737

PATIENT
  Age: 40 Year
  Sex: Female
  Weight: 83 kg

DRUGS (1)
  1. TYSABRI [Suspect]
     Indication: MULTIPLE SCLEROSIS
     Route: 042
     Dates: start: 20100401

REACTIONS (7)
  - CONSTIPATION [None]
  - DIARRHOEA [None]
  - EYELID PTOSIS [None]
  - FATIGUE [None]
  - HEADACHE [None]
  - OPTIC NEURITIS [None]
  - WEIGHT DECREASED [None]
